FAERS Safety Report 9383659 (Version 1)
Quarter: 2013Q3

REPORT INFORMATION
  Report Type: Spontaneous
  Country: PT (occurrence: PT)
  Receive Date: 20130704
  Receipt Date: 20130704
  Transmission Date: 20140515
  Serious: Yes (Other)
  Sender: FDA-Public Use
  Company Number: PHHY2012PT111722

PATIENT
  Age: 8 Year
  Sex: Male

DRUGS (4)
  1. PARACETAMOL [Suspect]
     Indication: HEADACHE
     Dosage: 500 MG, UNK
     Route: 048
  2. PARACETAMOL [Suspect]
  3. PARACETAMOL [Suspect]
     Dosage: 1 G, UNK
     Route: 048
  4. PARACETAMOL [Suspect]
     Dosage: 1 G, UNK
     Route: 042

REACTIONS (4)
  - Anaphylactic reaction [Unknown]
  - Urticaria [Unknown]
  - Wheezing [Unknown]
  - Angioedema [Unknown]
